FAERS Safety Report 7503601-7 (Version None)
Quarter: 2011Q2

REPORT INFORMATION
  Report Type: 
  Country: None (occurrence: None)
  Receive Date: 20110525
  Receipt Date: 20110520
  Transmission Date: 20111010
  Serious: Yes (Death, Life-Threatening)
  Sender: FDA-Public Use
  Company Number: DE-PFIZER INC-2011096918

PATIENT
  Age: 79 Year
  Sex: Male
  Weight: 119.6 kg

DRUGS (11)
  1. METFORMIN [Concomitant]
     Indication: DIABETES MELLITUS
     Dosage: 1000 MG, 1X/DAY
     Dates: start: 19910101
  2. ASPIRIN [Concomitant]
     Indication: HYPERTENSION
     Dosage: 100 MG, 1X/DAY
     Route: 048
     Dates: start: 19910101
  3. LEVOTHYROXINE SODIUM [Concomitant]
     Indication: HYPOTHYROIDISM
     Dosage: 125 UG, 1X/DAY
     Dates: start: 19910101
  4. ALLOPURINOL [Concomitant]
     Indication: BLOOD URIC ACID INCREASED
     Dosage: 1 DF, 1X/DAY
     Dates: start: 19910101
  5. SOMATROPIN RDNA [Suspect]
     Indication: HYPOPITUITARISM
     Dosage: 0.4 MG, 1X/DAY
     Dates: start: 20090509
  6. AQUAPHOR TABLET [Concomitant]
     Indication: DIURETIC THERAPY
     Dosage: 40 MG, 1X/DAY
     Dates: start: 19910101
  7. ALNA [Concomitant]
     Indication: BENIGN PROSTATIC HYPERPLASIA
     Dosage: 0.4 MG, 1X/DAY
     Dates: start: 19910101
  8. PIRETANIDE SODIUM [Concomitant]
     Indication: HYPERTENSION
     Dosage: 3 MG, 1X/DAY
     Dates: start: 19910101
  9. TESTOSTERONE [Concomitant]
     Indication: SECONDARY HYPOGONADISM
     Dosage: 50 MG, 1X/DAY
     Dates: start: 19910101
  10. HYDROCORTISONE [Concomitant]
     Dosage: 15 MG, 1X/DAY
  11. BISOPROLOL FUMARATE [Concomitant]
     Indication: HYPERTENSION
     Dosage: 5 MG, 1X/DAY
     Dates: start: 19910101

REACTIONS (1)
  - CEREBROVASCULAR ACCIDENT [None]
